FAERS Safety Report 11492118 (Version 1)
Quarter: 2015Q3

REPORT INFORMATION
  Report Type: Report from Study
  Country: CA (occurrence: CA)
  Receive Date: 20150910
  Receipt Date: 20150910
  Transmission Date: 20151125
  Serious: Yes (Death, Other)
  Sender: FDA-Public Use
  Company Number: PHHY2014CA008179

PATIENT
  Age: 68 Year
  Sex: Male

DRUGS (4)
  1. DILAUDID [Concomitant]
     Active Substance: HYDROMORPHONE HYDROCHLORIDE
     Indication: PAIN
     Dosage: EVERY 4 HOURS AND EVERY 1 HOUR, PRN
     Route: 065
  2. SANDOSTATIN LAR DEPOT [Suspect]
     Active Substance: OCTREOTIDE ACETATE
     Indication: METASTATIC CARCINOID TUMOUR
     Dosage: 40 MG, QMO
     Route: 030
     Dates: start: 20090806
  3. SANDOSTATIN LAR DEPOT [Suspect]
     Active Substance: OCTREOTIDE ACETATE
     Dosage: 30 MG, QMO
     Route: 030
     Dates: start: 20150707
  4. SANDOSTATIN LAR DEPOT [Suspect]
     Active Substance: OCTREOTIDE ACETATE
     Dosage: 60 MG, QMO (EVERY 4 WEEKS)
     Route: 030

REACTIONS (13)
  - Death [Fatal]
  - Contusion [Unknown]
  - Bone disorder [Unknown]
  - Malignant neoplasm progression [Unknown]
  - Blood pressure systolic increased [Unknown]
  - Peripheral swelling [Unknown]
  - Abdominal discomfort [Unknown]
  - Injection site haematoma [Unknown]
  - Gastrointestinal disorder [Unknown]
  - Discomfort [Unknown]
  - Injection site mass [Unknown]
  - Blood creatinine increased [Unknown]
  - Dyspnoea [Unknown]

NARRATIVE: CASE EVENT DATE: 20131216
